FAERS Safety Report 18479727 (Version 1)
Quarter: 2020Q4

REPORT INFORMATION
  Report Type: Spontaneous
  Country: CL (occurrence: CL)
  Receive Date: 20201109
  Receipt Date: 20201109
  Transmission Date: 20210114
  Serious: Yes (Other)
  Sender: FDA-Public Use
  Company Number: CL-TEVA-2020-CL-1846125

PATIENT
  Age: 40 Year
  Sex: Male

DRUGS (1)
  1. IMATINIB. [Suspect]
     Active Substance: IMATINIB MESYLATE
     Indication: CHRONIC MYELOID LEUKAEMIA
     Route: 065

REACTIONS (2)
  - Nephrolithiasis [Recovering/Resolving]
  - Hypophosphataemia [Recovered/Resolved]
